FAERS Safety Report 14247886 (Version 1)
Quarter: 2017Q4

REPORT INFORMATION
  Report Type: Spontaneous
  Country: US (occurrence: US)
  Receive Date: 20171204
  Receipt Date: 20171204
  Transmission Date: 20180321
  Serious: Yes (Other)
  Sender: FDA-Public Use
  Company Number: US-SA-2017SA240734

PATIENT
  Age: 71 Year
  Sex: Male

DRUGS (4)
  1. LANTUS SOLOSTAR [Suspect]
     Active Substance: INSULIN GLARGINE
     Dosage: DOSE:21 UNIT(S)
     Route: 058
  2. LANTUS SOLOSTAR [Suspect]
     Active Substance: INSULIN GLARGINE
     Dosage: DOSE:14 UNIT(S)
     Route: 058
     Dates: start: 201709
  3. SOLOSTAR [Suspect]
     Active Substance: DEVICE
     Dates: start: 201709
  4. SOLOSTAR [Suspect]
     Active Substance: DEVICE

REACTIONS (2)
  - Renal disorder [Unknown]
  - Blood glucose increased [Unknown]
